FAERS Safety Report 8563433-8 (Version None)
Quarter: 2012Q3

REPORT INFORMATION
  Report Type: 
  Country: None (occurrence: None)
  Receive Date: 20120802
  Receipt Date: 20101008
  Transmission Date: 20120928
  Serious: Yes (Life-Threatening, Hospitalization, Other)
  Sender: FDA-Public Use
  Company Number: US-BAYER-200942456NA

PATIENT
  Age: 17 Year
  Sex: Female
  Weight: 81.818 kg

DRUGS (20)
  1. APAP TAB [Concomitant]
     Dosage: 3 TABLETS
  2. AMOXICILLIN [Concomitant]
  3. AVIANE-28 [Concomitant]
     Dates: start: 20100101
  4. NAPROSYN [Concomitant]
     Indication: DYSMENORRHOEA
     Dosage: USE AS NEEDED WITH HER PERIODS
  5. RANITIDINE [Concomitant]
  6. CEPHALEXIN [Concomitant]
  7. IBUPROFEN [Concomitant]
  8. YAZ [Suspect]
     Indication: PREMENSTRUAL SYNDROME
     Route: 048
     Dates: start: 20070425, end: 20080201
  9. ALBUTEROL [Concomitant]
  10. YAZ [Suspect]
     Indication: MENSTRUATION IRREGULAR
  11. CYCLOBENZAPRINE [Concomitant]
  12. POLYMYXIN B SULFATE W/TRIMETHOPRIM SULFATE [Concomitant]
  13. MUSCLE RELAXANT [Concomitant]
     Indication: MUSCLE RELAXANT THERAPY
  14. ATUSS DR [Concomitant]
  15. NAPROSYN [Concomitant]
     Indication: DYSFUNCTIONAL UTERINE BLEEDING
  16. NAPROXEN [Concomitant]
  17. PREDNISONE [Concomitant]
     Route: 047
  18. PHENERGAN HCL [Concomitant]
  19. LEVONORGESTREL + ETHINYL ESTRADIOL [Concomitant]
     Dates: start: 20081201
  20. ZITHROMAX [Concomitant]

REACTIONS (13)
  - GASTROOESOPHAGEAL REFLUX DISEASE [None]
  - VOMITING [None]
  - WEIGHT DECREASED [None]
  - CHOLECYSTITIS [None]
  - CHOLELITHIASIS [None]
  - DIARRHOEA [None]
  - PANCREATITIS [None]
  - ABDOMINAL PAIN UPPER [None]
  - ORGAN FAILURE [None]
  - DECREASED APPETITE [None]
  - NAUSEA [None]
  - DYSPEPSIA [None]
  - COLITIS [None]
